FAERS Safety Report 9816974 (Version 2)
Quarter: 2014Q1

REPORT INFORMATION
  Report Type: Spontaneous
  Country: DE (occurrence: JP)
  Receive Date: 20140114
  Receipt Date: 20140225
  Transmission Date: 20141002
  Serious: Yes (Hospitalization)
  Sender: FDA-Public Use
  Company Number: JP-FRI-1000052842

PATIENT
  Age: 77 Year
  Sex: Female

DRUGS (12)
  1. MEMANTINE [Suspect]
     Indication: DEMENTIA
     Dosage: 5 MG
     Route: 048
     Dates: start: 20130605, end: 20130618
  2. MEMANTINE [Suspect]
     Dosage: 10 MG
     Route: 048
     Dates: start: 20130619, end: 20130702
  3. MEMANTINE [Suspect]
     Indication: DEMENTIA
     Dosage: 15 MG
     Route: 048
     Dates: start: 20130703, end: 20131219
  4. MEMANTINE [Suspect]
     Route: 048
     Dates: start: 20131225, end: 20131228
  5. NEXIUM [Suspect]
     Indication: GASTRIC ULCER
     Dosage: 20 MG
     Route: 048
     Dates: start: 20121017, end: 20131219
  6. NEXIUM [Suspect]
     Indication: GASTROOESOPHAGEAL REFLUX DISEASE
     Dosage: 20 MG
     Route: 048
     Dates: start: 20131225, end: 20131228
  7. GASMOTIN [Suspect]
     Indication: GASTRITIS
     Dosage: 10 MG
     Route: 048
     Dates: end: 20131219
  8. GASMOTIN [Suspect]
     Dosage: 10 MG
     Route: 048
     Dates: start: 20131225, end: 20131228
  9. MILNACIPRAN [Concomitant]
     Indication: DEPRESSION
     Dosage: 25 MG
     Route: 048
     Dates: end: 20131219
  10. MILNACIPRAN [Concomitant]
     Dosage: 25 MG
     Route: 048
     Dates: start: 20131225, end: 20131228
  11. MAGNESIUM OXIDE [Concomitant]
     Indication: CONSTIPATION
     Dosage: 3 G
     Route: 048
     Dates: end: 20131219
  12. MAGNESIUM OXIDE [Concomitant]
     Dosage: 3G
     Route: 048
     Dates: start: 20131225, end: 20131228

REACTIONS (2)
  - Drug-induced liver injury [Recovering/Resolving]
  - Drug-induced liver injury [Recovering/Resolving]
